FAERS Safety Report 6523649-9 (Version None)
Quarter: 2009Q4

REPORT INFORMATION
  Report Type: 
  Country: None (occurrence: None)
  Receive Date: 20091231
  Receipt Date: 20091228
  Transmission Date: 20100525
  Serious: Yes (Death)
  Sender: FDA-Public Use
  Company Number: SE-ABBOTT-09P-150-0616282-00

PATIENT
  Sex: Female

DRUGS (1)
  1. REDUCTIL 10MG [Suspect]
     Indication: DRUG USE FOR UNKNOWN INDICATION

REACTIONS (1)
  - SUDDEN DEATH [None]
